FAERS Safety Report 15943192 (Version 4)
Quarter: 2020Q1

REPORT INFORMATION
  Report Type: Spontaneous
  Country: US (occurrence: US)
  Receive Date: 20190210
  Receipt Date: 20200305
  Transmission Date: 20200409
  Serious: Yes (Other)
  Sender: FDA-Public Use
  Company Number: US-ASTRAZENECA-2018SF25880

PATIENT
  Sex: Male
  Weight: 111.1 kg

DRUGS (46)
  1. NEXIUM [Suspect]
     Active Substance: ESOMEPRAZOLE MAGNESIUM
     Indication: DYSPEPSIA
     Dosage: GENERIC
     Route: 065
  2. NEXIUM 24HR [Suspect]
     Active Substance: ESOMEPRAZOLE MAGNESIUM
     Route: 048
  3. PROTONIX [Suspect]
     Active Substance: PANTOPRAZOLE SODIUM
     Indication: DYSPEPSIA
     Route: 065
     Dates: start: 2016
  4. PROTONIX [Suspect]
     Active Substance: PANTOPRAZOLE SODIUM
     Indication: DYSPEPSIA
     Dosage: GENERIC
     Route: 065
  5. LIPITOR [Concomitant]
     Active Substance: ATORVASTATIN CALCIUM
  6. ENALAPRIL [Concomitant]
     Active Substance: ENALAPRIL
  7. HYDRALAZINE [Concomitant]
     Active Substance: HYDRALAZINE HYDROCHLORIDE
  8. CLINDAMAX [Concomitant]
     Active Substance: CLINDAMYCIN PHOSPHATE
  9. ZANTAC [Concomitant]
     Active Substance: RANITIDINE HYDROCHLORIDE
  10. HYDROCHLOROTHIAZIDE. [Concomitant]
     Active Substance: HYDROCHLOROTHIAZIDE
  11. PRAVASTATIN. [Concomitant]
     Active Substance: PRAVASTATIN
  12. GLIPIZIDE. [Concomitant]
     Active Substance: GLIPIZIDE
  13. AMLODIPINE BESYLATE. [Concomitant]
     Active Substance: AMLODIPINE BESYLATE
  14. NOVOLOG [Concomitant]
     Active Substance: INSULIN ASPART
  15. AZITHROMYCIN ANHYDROUS. [Concomitant]
     Active Substance: AZITHROMYCIN ANHYDROUS
  16. SPECTAZOLE [Concomitant]
     Active Substance: ECONAZOLE NITRATE
  17. CHERATUSSIN AC [Concomitant]
     Active Substance: CODEINE PHOSPHATE\GUAIFENESIN
  18. NEXIUM [Suspect]
     Active Substance: ESOMEPRAZOLE MAGNESIUM
     Indication: DYSPEPSIA
     Route: 048
     Dates: start: 1998
  19. NEXIUM [Suspect]
     Active Substance: ESOMEPRAZOLE MAGNESIUM
     Indication: DYSPEPSIA
     Route: 048
     Dates: start: 20041101
  20. PRILOSEC OTC [Suspect]
     Active Substance: OMEPRAZOLE MAGNESIUM
     Route: 048
  21. ECONAZOLE. [Concomitant]
     Active Substance: ECONAZOLE NITRATE
  22. DILTIAZEM. [Concomitant]
     Active Substance: DILTIAZEM
  23. KETOCONAZOLE. [Concomitant]
     Active Substance: KETOCONAZOLE
  24. BENZONATATE. [Concomitant]
     Active Substance: BENZONATATE
  25. NEXIUM [Suspect]
     Active Substance: ESOMEPRAZOLE MAGNESIUM
     Indication: DYSPEPSIA
     Route: 048
     Dates: start: 1995, end: 2016
  26. PRILOSEC [Suspect]
     Active Substance: OMEPRAZOLE MAGNESIUM
     Indication: GASTROOESOPHAGEAL REFLUX DISEASE
     Route: 048
     Dates: start: 2015
  27. PREVACID 24 HR [Suspect]
     Active Substance: LANSOPRAZOLE
     Route: 065
  28. PLAVIX [Concomitant]
     Active Substance: CLOPIDOGREL BISULFATE
  29. CICLOPIROX. [Concomitant]
     Active Substance: CICLOPIROX
  30. ZOCOR [Concomitant]
     Active Substance: SIMVASTATIN
  31. TERBINAFINE. [Concomitant]
     Active Substance: TERBINAFINE
  32. PREVACID [Suspect]
     Active Substance: LANSOPRAZOLE
     Route: 065
  33. METFORMIN [Concomitant]
     Active Substance: METFORMIN HYDROCHLORIDE
  34. GLIMEPIRIDE. [Concomitant]
     Active Substance: GLIMEPIRIDE
  35. LANTUS [Concomitant]
     Active Substance: INSULIN GLARGINE
  36. PANTOPRAZOLE SODIUM. [Concomitant]
     Active Substance: PANTOPRAZOLE SODIUM
  37. NASONEX [Concomitant]
     Active Substance: MOMETASONE FUROATE
  38. VYTORIN [Concomitant]
     Active Substance: EZETIMIBE\SIMVASTATIN
  39. PREDNISONE. [Concomitant]
     Active Substance: PREDNISONE
  40. NITROSTAT [Concomitant]
     Active Substance: NITROGLYCERIN
  41. METOPROLOL. [Concomitant]
     Active Substance: METOPROLOL
  42. JANUVIA [Concomitant]
     Active Substance: SITAGLIPTIN PHOSPHATE
  43. LEVOFLOXACIN. [Concomitant]
     Active Substance: LEVOFLOXACIN
  44. CLOPIDOGREL [Concomitant]
     Active Substance: CLOPIDOGREL BISULFATE
  45. TOPROL XL [Concomitant]
     Active Substance: METOPROLOL SUCCINATE
  46. PEPCID [Concomitant]
     Active Substance: FAMOTIDINE

REACTIONS (3)
  - Oesophageal injury [Not Recovered/Not Resolved]
  - Chronic kidney disease [Not Recovered/Not Resolved]
  - Nephropathy [Unknown]
